FAERS Safety Report 24908187 (Version 1)
Quarter: 2025Q1

REPORT INFORMATION
  Report Type: Report from Study
  Country: IN (occurrence: IN)
  Receive Date: 20250131
  Receipt Date: 20250131
  Transmission Date: 20250409
  Serious: Yes (Death)
  Sender: ROCHE
  Company Number: IN-ROCHE-10000086516

PATIENT
  Age: 62 Year
  Sex: Male

DRUGS (2)
  1. TECENTRIQ [Suspect]
     Active Substance: ATEZOLIZUMAB
     Indication: Hepatocellular carcinoma
     Route: 040
     Dates: start: 20240313
  2. ALBUMIN HUMAN [Concomitant]
     Active Substance: ALBUMIN HUMAN

REACTIONS (6)
  - Off label use [Unknown]
  - Bone pain [Unknown]
  - Condition aggravated [Unknown]
  - Loss of consciousness [Unknown]
  - Muscular weakness [Fatal]
  - Asthenia [Fatal]

NARRATIVE: CASE EVENT DATE: 20250105
